FAERS Safety Report 9905379 (Version 1)
Quarter: 2013Q2

REPORT INFORMATION
  Report Type: Spontaneous
  Country: US (occurrence: None)
  Receive Date: 20130305
  Receipt Date: 20130305
  Transmission Date: 20140414
  Serious: Yes (Other)
  Sender: FDA-Public Use
  Company Number: 163-21880-12041583

PATIENT
  Age: 71 Year
  Sex: Female
  Weight: 104.33 kg

DRUGS (1)
  1. REVLIMID [Suspect]
     Indication: PLASMA CELL MYELOMA
     Dosage: 25 MG, 21 IN 21 D, PO  01/25/2010-10/05/2010 THERAPY DATES
     Route: 048
     Dates: start: 20100125, end: 20101005

REACTIONS (2)
  - Pancytopenia [None]
  - Leukopenia [None]
